FAERS Safety Report 20974213 (Version 2)
Quarter: 2022Q2

REPORT INFORMATION
  Report Type: Report from Study
  Country: DE (occurrence: None)
  Receive Date: 20220617
  Receipt Date: 20220630
  Transmission Date: 20220720
  Serious: Yes (Hospitalization)
  Sender: FDA-Public Use
  Company Number: DE-ROCHE-3116594

PATIENT
  Age: 65 Year
  Sex: Male
  Weight: 53 kg

DRUGS (9)
  1. ATEZOLIZUMAB [Suspect]
     Active Substance: ATEZOLIZUMAB
     Indication: Gastrointestinal neoplasm
     Dosage: LAST DOSE OF ATEZOLIZUMAB PRIOR TO THE EVENT ONSET WAS ADMINISTERED ON 27-MAY-2022
     Route: 041
     Dates: start: 20220429
  2. ATEZOLIZUMAB [Suspect]
     Active Substance: ATEZOLIZUMAB
     Indication: Pancreatic carcinoma metastatic
  3. PELAREOREP [Suspect]
     Active Substance: PELAREOREP
     Indication: Gastrointestinal neoplasm
     Dosage: 4.5X10^10TCID50
     Route: 042
     Dates: start: 20220427, end: 20220525
  4. PELAREOREP [Suspect]
     Active Substance: PELAREOREP
     Indication: Pancreatic carcinoma metastatic
     Dosage: 4.5X10^10TCID50
     Route: 042
     Dates: start: 20220608
  5. GEMCITABINE [Suspect]
     Active Substance: GEMCITABINE
     Indication: Gastrointestinal neoplasm
     Route: 065
     Dates: start: 20220427, end: 20220524
  6. GEMCITABINE [Suspect]
     Active Substance: GEMCITABINE
     Indication: Pancreatic carcinoma metastatic
     Route: 042
     Dates: start: 20220608
  7. PACLITAXEL [Suspect]
     Active Substance: PACLITAXEL
     Indication: Gastrointestinal neoplasm
     Route: 042
     Dates: start: 20220427, end: 20220524
  8. PACLITAXEL [Suspect]
     Active Substance: PACLITAXEL
     Indication: Pancreatic carcinoma metastatic
     Route: 042
     Dates: start: 20220608
  9. ELIQUIS [Concomitant]
     Active Substance: APIXABAN
     Indication: Anticoagulant therapy
     Route: 048
     Dates: start: 20220324

REACTIONS (1)
  - Urinary retention [Recovered/Resolved]

NARRATIVE: CASE EVENT DATE: 20220531
